FAERS Safety Report 6400989-5 (Version None)
Quarter: 2009Q4

REPORT INFORMATION
  Report Type: 
  Country: None (occurrence: None)
  Receive Date: 20091015
  Receipt Date: 20091008
  Transmission Date: 20100525
  Serious: Yes (Death, Hospitalization)
  Sender: FDA-Public Use
  Company Number: US-BIOGENIDEC-2009BI032259

PATIENT
  Age: 50 Year
  Sex: Female

DRUGS (12)
  1. TYSABRI [Suspect]
     Indication: MULTIPLE SCLEROSIS
     Route: 042
     Dates: start: 20090318, end: 20090318
  2. TYSABRI [Suspect]
     Route: 042
     Dates: start: 20061229, end: 20070126
  3. BACLOFEN [Concomitant]
  4. OXYCODONE [Concomitant]
  5. COLACE [Concomitant]
  6. LYRICA [Concomitant]
  7. ZOLOFT [Concomitant]
     Indication: DEPRESSION
  8. PRINIVIL [Concomitant]
  9. NOVANTRONE [Concomitant]
  10. TIZANIDINE HCL [Concomitant]
  11. PROVIGIL [Concomitant]
  12. VITAMIN D [Concomitant]

REACTIONS (4)
  - DERMATITIS ALLERGIC [None]
  - MULTIPLE SCLEROSIS RELAPSE [None]
  - RESPIRATORY FAILURE [None]
  - SUICIDE ATTEMPT [None]
